FAERS Safety Report 13024382 (Version 4)
Quarter: 2017Q1

REPORT INFORMATION
  Report Type: Spontaneous
  Country: US (occurrence: US)
  Receive Date: 20161213
  Receipt Date: 20170201
  Transmission Date: 20170428
  Serious: Yes (Other)
  Sender: FDA-Public Use
  Company Number: US-ALLERGAN-1680004US

PATIENT
  Sex: Female

DRUGS (1)
  1. LUMIGAN [Suspect]
     Active Substance: BIMATOPROST
     Indication: INTRAOCULAR PRESSURE INCREASED
     Dosage: UNK
     Route: 047

REACTIONS (6)
  - Visual impairment [Not Recovered/Not Resolved]
  - Corneal graft rejection [Unknown]
  - Blood glucose increased [Recovering/Resolving]
  - Road traffic accident [Unknown]
  - Drug dose omission [Unknown]
  - Corneal transplant [Unknown]

NARRATIVE: CASE EVENT DATE: 201610
